FAERS Safety Report 4412399-0 (Version None)
Quarter: 2004Q3

REPORT INFORMATION
  Report Type: 
  Country: None (occurrence: None)
  Receive Date: 20040727
  Receipt Date: 20040715
  Transmission Date: 20050211
  Serious: No
  Sender: FDA-Public Use
  Company Number: 04P-163-0267168-00

PATIENT
  Sex: Female
  Weight: 60 kg

DRUGS (2)
  1. ZEMPLAR INJECTION (PARICALCITOL INJECTION) (PARICALCITOL) (PARICALCITO [Suspect]
     Indication: RENAL FAILURE
     Dosage: 3 IN 1 WK, INTRAVENOUS
     Route: 042
     Dates: start: 20040501
  2. EPOETIN ALFA [Concomitant]

REACTIONS (4)
  - ANAPHYLACTOID REACTION [None]
  - CHEST PAIN [None]
  - LARYNGEAL OEDEMA [None]
  - PALPITATIONS [None]
